FAERS Safety Report 21391993 (Version 1)
Quarter: 2022Q3

REPORT INFORMATION
  Report Type: Spontaneous
  Country: US (occurrence: None)
  Receive Date: 20220928
  Receipt Date: 20220928
  Transmission Date: 20221027
  Serious: No
  Sender: FDA-Public Use
  Company Number: None

PATIENT
  Age: 72 Year
  Sex: Male
  Weight: 150 kg

DRUGS (1)
  1. PRAVASTATIN SODIUM [Suspect]
     Active Substance: PRAVASTATIN SODIUM
     Indication: Hyperlipidaemia
     Dosage: FREQUENCY : AT BEDTIME;?
     Route: 048
     Dates: start: 20220525, end: 20220629

REACTIONS (2)
  - Myalgia [None]
  - Muscle spasms [None]

NARRATIVE: CASE EVENT DATE: 20220711
